FAERS Safety Report 5543112-1 (Version None)
Quarter: 2007Q4

REPORT INFORMATION
  Report Type: 
  Country: None (occurrence: None)
  Receive Date: 20071210
  Receipt Date: 20071128
  Transmission Date: 20080405
  Serious: Yes (Other)
  Sender: FDA-Public Use
  Company Number: JP-PFIZER INC-2007102403

PATIENT
  Age: 63 Year
  Sex: Female

DRUGS (3)
  1. LIPITOR [Suspect]
  2. HERBAL PREPARATION [Suspect]
  3. ALL OTHER NON-THERAPEUTIC PRODUCTS [Suspect]

REACTIONS (1)
  - LIVER DISORDER [None]
